FAERS Safety Report 18642945 (Version 1)
Quarter: 2020Q4

REPORT INFORMATION
  Report Type: Spontaneous
  Country: ES (occurrence: ES)
  Receive Date: 20201221
  Receipt Date: 20201221
  Transmission Date: 20210114
  Serious: Yes (Other)
  Sender: FDA-Public Use
  Company Number: NVSC2020ES331098

PATIENT
  Sex: Female

DRUGS (2)
  1. ILARIS [Suspect]
     Active Substance: CANAKINUMAB
     Indication: PRODUCT USED FOR UNKNOWN INDICATION
     Dosage: 150 MG, Q4W
     Route: 065
  2. ILARIS [Suspect]
     Active Substance: CANAKINUMAB
     Dosage: 300 MG, EVERY 15 DAYS
     Route: 065

REACTIONS (7)
  - Disease progression [Unknown]
  - Off label use [Unknown]
  - Amyloidosis [Unknown]
  - Renal amyloidosis [Unknown]
  - Proteinuria [Unknown]
  - Renal failure [Unknown]
  - Oedema [Unknown]
